FAERS Safety Report 20728602 (Version 3)
Quarter: 2022Q4

REPORT INFORMATION
  Report Type: Report from Study
  Country: US (occurrence: US)
  Receive Date: 20220420
  Receipt Date: 20221012
  Transmission Date: 20230112
  Serious: Yes (Hospitalization)
  Sender: FDA-Public Use
  Company Number: US-ABBVIE-22K-163-4269272-00

PATIENT
  Age: 60 Year
  Sex: Male

DRUGS (4)
  1. HUMIRA [Suspect]
     Active Substance: ADALIMUMAB
     Indication: Crohn^s disease
     Dosage: CITRATE FREE
     Route: 058
  2. MODERNA COVID-19 VACCINE [Concomitant]
     Active Substance: ELASOMERAN
     Indication: COVID-19 immunisation
     Dosage: SECOND DOSE ?ONE IN ONCE FREQUENCY
     Route: 030
     Dates: start: 20210601, end: 20210601
  3. MODERNA COVID-19 VACCINE [Concomitant]
     Active Substance: ELASOMERAN
     Indication: COVID-19 immunisation
     Dosage: FIRST DOSE?ONE IN ONCE FREQUENCY
     Route: 030
     Dates: start: 20210503, end: 20210503
  4. PFIZER-BIONTECH COVID-19 VACCINE [Concomitant]
     Active Substance: TOZINAMERAN
     Indication: COVID-19 immunisation
     Dosage: ONE IN ONCE FREQUENCY?BOOSTER DOSE
     Route: 030
     Dates: start: 20220110, end: 20220110

REACTIONS (3)
  - Cardiac disorder [Recovering/Resolving]
  - Cardiac failure [Recovering/Resolving]
  - Heart rate irregular [Recovering/Resolving]

NARRATIVE: CASE EVENT DATE: 20220101
